FAERS Safety Report 4338307-9 (Version None)
Quarter: 2004Q2

REPORT INFORMATION
  Report Type: 
  Country: None (occurrence: None)
  Receive Date: 20040413
  Receipt Date: 20040413
  Transmission Date: 20050107
  Serious: Yes (Hospitalization)
  Sender: FDA-Public Use
  Company Number: None

PATIENT
  Sex: Male
  Weight: 103.4201 kg

DRUGS (2)
  1. INTERFERON 3 MIU SCHERING [Suspect]
     Indication: RENAL CELL CARCINOMA STAGE UNSPECIFIED
     Dosage: 3 MIU QD SUBCUTANEOUS
     Route: 058
     Dates: start: 20040324, end: 20040330
  2. CELECOXIB 100 MG PHARMACIA [Suspect]
     Indication: RENAL CELL CARCINOMA STAGE UNSPECIFIED
     Dosage: 200 MG BID ORAL
     Route: 048
     Dates: start: 20040324, end: 20040330

REACTIONS (5)
  - GASTROINTESTINAL HAEMORRHAGE [None]
  - NAUSEA [None]
  - PNEUMONIA [None]
  - RENAL FAILURE [None]
  - VOMITING [None]
